FAERS Safety Report 16978136 (Version 2)
Quarter: 2020Q4

REPORT INFORMATION
  Report Type: Spontaneous
  Country: US (occurrence: US)
  Receive Date: 20191031
  Receipt Date: 20201222
  Transmission Date: 20210113
  Serious: Yes (Hospitalization, Other)
  Sender: FDA-Public Use
  Company Number: US-RECKITT BENCKISER HEALTHCARE INT LIMITED-RB-91510-2019

PATIENT
  Age: 36 Year
  Sex: Female

DRUGS (2)
  1. DELSYM [Suspect]
     Active Substance: DEXTROMETHORPHAN
     Indication: PAIN
     Dosage: 120 MILLIGRAM, QD
     Route: 065
  2. MAGNESIUM OXIDE. [Concomitant]
     Active Substance: MAGNESIUM OXIDE
     Indication: PAIN
     Dosage: 600 MILLIGRAM, QD
     Route: 065

REACTIONS (9)
  - Pressure of speech [Unknown]
  - Self-medication [Unknown]
  - Affect lability [Unknown]
  - Mania [Recovered/Resolved]
  - Flight of ideas [Unknown]
  - Hypothyroidism [Unknown]
  - Grandiosity [Unknown]
  - Drug abuse [Unknown]
  - Irritability [Unknown]
